FAERS Safety Report 6486168-4 (Version None)
Quarter: 2009Q4

REPORT INFORMATION
  Report Type: 
  Country: None (occurrence: None)
  Receive Date: 20091207
  Receipt Date: 20091120
  Transmission Date: 20100525
  Serious: Yes (Hospitalization, Other)
  Sender: FDA-Public Use
  Company Number: 2009003419

PATIENT
  Sex: Male
  Weight: 92.0802 kg

DRUGS (18)
  1. ERLOTINIB HYDROCHLORIDE [Suspect]
     Dosage: (150 MG,QD), ORAL
     Route: 048
     Dates: start: 20090824, end: 20091103
  2. JANUVIA [Concomitant]
  3. BENAZEPRIL HYDROCHLORIDE [Concomitant]
  4. SIMVASTATIN [Concomitant]
  5. PRILOSEC [Concomitant]
  6. MULTIVITAMIN [Concomitant]
  7. ZOFRAN [Concomitant]
  8. XALATAN EYE DROPS (LATANOPROST) [Concomitant]
  9. DOCUSATE (DOCUSATE ) [Concomitant]
  10. INSULIN GLARGINE (INSULIN GLARGINE) [Concomitant]
  11. INSULIN LISPRO (INSULIN LISPRO) [Concomitant]
  12. ALBUTEROL [Concomitant]
  13. TRIMETHOPRIM [Concomitant]
  14. PREDNISONE [Concomitant]
  15. OXYCODONE HCL [Concomitant]
  16. SIMETHICONE (DIMETICONE, ACTIVATED) [Concomitant]
  17. DALTEPARIN [Concomitant]
  18. ACETAMINOPHEN [Concomitant]

REACTIONS (8)
  - CHEST PAIN [None]
  - HYPERGLYCAEMIA [None]
  - INTERSTITIAL LUNG DISEASE [None]
  - ORGAN FAILURE [None]
  - PNEUMONIA [None]
  - PNEUMONIA BACTERIAL [None]
  - RADIATION PNEUMONITIS [None]
  - SEPSIS [None]
